FAERS Safety Report 7913742-8 (Version None)
Quarter: 2011Q4

REPORT INFORMATION
  Report Type: 
  Country: None (occurrence: None)
  Receive Date: 20111110
  Receipt Date: 20111027
  Transmission Date: 20120403
  Serious: Yes (Other)
  Sender: FDA-Public Use
  Company Number: TPA2011A07151

PATIENT
  Age: 74 Year
  Sex: Male

DRUGS (1)
  1. ACTOS [Suspect]
     Dosage: 45 MG, 1 IN 1 D, PER ORAL
     Route: 048
     Dates: start: 20070101, end: 20111001

REACTIONS (2)
  - HAEMATURIA [None]
  - BLADDER DYSPLASIA [None]
